FAERS Safety Report 5849256-9 (Version None)
Quarter: 2008Q3

REPORT INFORMATION
  Report Type: 
  Country: None (occurrence: None)
  Receive Date: 20080819
  Receipt Date: 20080807
  Transmission Date: 20090109
  Serious: Yes (Other)
  Sender: FDA-Public Use
  Company Number: US-BAYER-200823575NA

PATIENT
  Age: 81 Year
  Sex: Female
  Weight: 68 kg

DRUGS (2)
  1. CLIMARA [Suspect]
     Indication: HORMONE REPLACEMENT THERAPY
     Route: 062
     Dates: start: 20010101
  2. CLIMARA [Suspect]
     Route: 062

REACTIONS (4)
  - APPLICATION SITE VESICLES [None]
  - CARDIAC DISORDER [None]
  - LYMPHOMA [None]
  - RASH [None]
